FAERS Safety Report 12153117 (Version 2)
Quarter: 2019Q1

REPORT INFORMATION
  Report Type: Spontaneous
  Country: US (occurrence: US)
  Receive Date: 20160305
  Receipt Date: 20190227
  Transmission Date: 20190417
  Serious: No
  Sender: FDA-Public Use
  Company Number: US-JNJFOC-20160210929

PATIENT
  Sex: Male
  Weight: 77.11 kg

DRUGS (1)
  1. SUDAFED NASAL DECONGESTANT MAXIMUM STRENGTH [Suspect]
     Active Substance: PSEUDOEPHEDRINE HYDROCHLORIDE
     Indication: NASAL CONGESTION
     Dosage: 1-2 CAPLETS
     Route: 048
     Dates: start: 20160206

REACTIONS (2)
  - Therapeutic response decreased [Unknown]
  - Incorrect dose administered [Unknown]
